FAERS Safety Report 18924569 (Version 1)
Quarter: 2021Q1

REPORT INFORMATION
  Report Type: Report from Study
  Country: US (occurrence: US)
  Receive Date: 20210222
  Receipt Date: 20210222
  Transmission Date: 20210420
  Serious: Yes (Hospitalization, Disabling, Other)
  Sender: FDA-Public Use
  Company Number: US-BIOGEN-2021BI00979385

PATIENT
  Age: 66 Year
  Sex: Female

DRUGS (2)
  1. TECFIDERA [Suspect]
     Active Substance: DIMETHYL FUMARATE
     Dosage: STARTING DOSE
     Route: 048
  2. TECFIDERA [Suspect]
     Active Substance: DIMETHYL FUMARATE
     Indication: MULTIPLE SCLEROSIS
     Dosage: MAINTENANCE DOSE
     Route: 048
     Dates: start: 20140827, end: 20210101

REACTIONS (3)
  - Cerebrovascular accident [Not Recovered/Not Resolved]
  - Diplegia [Not Recovered/Not Resolved]
  - Encephalomyelitis [Not Recovered/Not Resolved]

NARRATIVE: CASE EVENT DATE: 20210101
